FAERS Safety Report 7213182-3 (Version None)
Quarter: 2011Q1

REPORT INFORMATION
  Report Type: 
  Country: None (occurrence: None)
  Receive Date: 20110106
  Receipt Date: 20101229
  Transmission Date: 20110831
  Serious: Yes (Hospitalization)
  Sender: FDA-Public Use
  Company Number: US-B.I. PHARMACEUTICALS,INC./RIDGEFIELD-2010-BP-13039BP

PATIENT
  Age: 55 Year
  Sex: Male

DRUGS (14)
  1. QUETIAPINE FUMARATE [Concomitant]
     Dosage: 100 MG
     Route: 048
  2. CITALOPRAM HYDROBROMIDE [Concomitant]
     Indication: DEPRESSION
     Dosage: 20 MG
     Route: 048
  3. ISOSORBIDE MONONITRATE [Concomitant]
     Dosage: 15 MG
     Route: 048
  4. NAPROXEN [Concomitant]
     Indication: PAIN
  5. RANITIDINE HCL [Concomitant]
     Indication: ABDOMINAL DISCOMFORT
     Dosage: 300 MG
     Route: 048
  6. ASPIRIN [Concomitant]
     Indication: ANTICOAGULANT THERAPY
     Dosage: 325 MG
     Route: 048
  7. NAPROXEN [Concomitant]
     Indication: ARTHRITIS
     Dosage: 750 MG
     Route: 048
  8. SIMVASTATIN [Concomitant]
     Indication: BLOOD CHOLESTEROL ABNORMAL
     Dosage: 80 MG
     Route: 048
  9. MIRAPEX [Suspect]
     Indication: RESTLESS LEGS SYNDROME
     Route: 048
     Dates: start: 20050101
  10. ALBUTEROL [Concomitant]
     Indication: DYSPNOEA
     Route: 055
  11. CLOPIDOGREL BISULFATE [Concomitant]
     Indication: ANTICOAGULANT THERAPY
     Dosage: 75 MG
     Route: 048
  12. LISINOPRIL [Concomitant]
     Indication: BLOOD PRESSURE
     Dosage: 5 MG
     Route: 048
  13. LISINOPRIL [Concomitant]
     Indication: CARDIAC DISORDER
  14. MIRAPEX [Suspect]
     Dosage: 3 MG
     Route: 048

REACTIONS (18)
  - HEART RATE DECREASED [None]
  - PAIN IN EXTREMITY [None]
  - PERSONALITY DISORDER [None]
  - DYSLIPIDAEMIA [None]
  - DRUG ABUSE [None]
  - CORONARY ARTERY DISEASE [None]
  - PATHOLOGICAL GAMBLING [None]
  - MUSCLE ATROPHY [None]
  - ALCOHOLISM [None]
  - TOBACCO ABUSE [None]
  - BACTERIAL DISEASE CARRIER [None]
  - CHEST PAIN [None]
  - DRUG DEPENDENCE [None]
  - HYPERTENSION [None]
  - ARTERIAL OCCLUSIVE DISEASE [None]
  - AFFECTIVE DISORDER [None]
  - BLOOD CHOLESTEROL INCREASED [None]
  - GASTROOESOPHAGEAL REFLUX DISEASE [None]
